FAERS Safety Report 25974697 (Version 1)
Quarter: 2025Q4

REPORT INFORMATION
  Report Type: Spontaneous
  Country: EU (occurrence: EU)
  Receive Date: 20251029
  Receipt Date: 20251029
  Transmission Date: 20260117
  Serious: Yes (Other)
  Sender: MYLAN
  Company Number: None

PATIENT
  Age: 38 Year
  Sex: Female
  Weight: 74 kg

DRUGS (24)
  1. METHOTREXATE [Suspect]
     Active Substance: METHOTREXATE
     Indication: Bacterial infection
     Dosage: 10 MILLIGRAM, QW
     Dates: start: 20240719, end: 20250825
  2. METHOTREXATE [Suspect]
     Active Substance: METHOTREXATE
     Dosage: 10 MILLIGRAM, QW
     Route: 058
     Dates: start: 20240719, end: 20250825
  3. METHOTREXATE [Suspect]
     Active Substance: METHOTREXATE
     Dosage: 10 MILLIGRAM, QW
     Route: 058
     Dates: start: 20240719, end: 20250825
  4. METHOTREXATE [Suspect]
     Active Substance: METHOTREXATE
     Dosage: 10 MILLIGRAM, QW
     Dates: start: 20240719, end: 20250825
  5. OFLOXACIN [Suspect]
     Active Substance: OFLOXACIN
     Indication: Bacterial infection
     Dosage: 200 MILLIGRAM, BID
     Dates: start: 20250822, end: 20250825
  6. OFLOXACIN [Suspect]
     Active Substance: OFLOXACIN
     Dosage: 200 MILLIGRAM, BID
     Route: 048
     Dates: start: 20250822, end: 20250825
  7. OFLOXACIN [Suspect]
     Active Substance: OFLOXACIN
     Dosage: 200 MILLIGRAM, BID
     Route: 048
     Dates: start: 20250822, end: 20250825
  8. OFLOXACIN [Suspect]
     Active Substance: OFLOXACIN
     Dosage: 200 MILLIGRAM, BID
     Dates: start: 20250822, end: 20250825
  9. MORPHINE SULFATE [Concomitant]
     Active Substance: MORPHINE SULFATE
     Dosage: UNK
  10. MORPHINE SULFATE [Concomitant]
     Active Substance: MORPHINE SULFATE
     Dosage: UNK
     Route: 065
  11. MORPHINE SULFATE [Concomitant]
     Active Substance: MORPHINE SULFATE
     Dosage: UNK
     Route: 065
  12. MORPHINE SULFATE [Concomitant]
     Active Substance: MORPHINE SULFATE
     Dosage: UNK
  13. ACUPAN [Concomitant]
     Active Substance: NEFOPAM HYDROCHLORIDE
     Dosage: UNK
  14. ACUPAN [Concomitant]
     Active Substance: NEFOPAM HYDROCHLORIDE
     Dosage: UNK
     Route: 065
  15. ACUPAN [Concomitant]
     Active Substance: NEFOPAM HYDROCHLORIDE
     Dosage: UNK
     Route: 065
  16. ACUPAN [Concomitant]
     Active Substance: NEFOPAM HYDROCHLORIDE
     Dosage: UNK
  17. Spasfon [Concomitant]
     Dosage: UNK
  18. Spasfon [Concomitant]
     Dosage: UNK
     Route: 065
  19. Spasfon [Concomitant]
     Dosage: UNK
     Route: 065
  20. Spasfon [Concomitant]
     Dosage: UNK
  21. VOGALENE [Concomitant]
     Active Substance: METOPIMAZINE
     Dosage: UNK
  22. VOGALENE [Concomitant]
     Active Substance: METOPIMAZINE
     Dosage: UNK
     Route: 065
  23. VOGALENE [Concomitant]
     Active Substance: METOPIMAZINE
     Dosage: UNK
     Route: 065
  24. VOGALENE [Concomitant]
     Active Substance: METOPIMAZINE
     Dosage: UNK

REACTIONS (1)
  - Hepatic cytolysis [Not Recovered/Not Resolved]

NARRATIVE: CASE EVENT DATE: 20250825
